FAERS Safety Report 4320074-6 (Version None)
Quarter: 2004Q1

REPORT INFORMATION
  Report Type: 
  Country: None (occurrence: None)
  Receive Date: 20040315
  Receipt Date: 20040204
  Transmission Date: 20041129
  Serious: No
  Sender: FDA-Public Use
  Company Number: 2004197678US

PATIENT
  Age: 71 Year
  Sex: Male
  Weight: 87.0906 kg

DRUGS (6)
  1. BEXTRA [Suspect]
     Indication: LOCALISED OSTEOARTHRITIS
     Dosage: 20 MG, QD, ORAL
     Route: 048
     Dates: start: 20030401, end: 20030601
  2. ASPIRIN [Suspect]
     Indication: CORONARY ARTERY DISEASE
     Dosage: 81 MG, UNK, ORAL
     Route: 048
     Dates: end: 20040101
  3. LIPITOR [Concomitant]
  4. TOPROL (METOPROLOL SUCCINATE) [Concomitant]
  5. ZETIA [Concomitant]
  6. ZITHROMAX [Concomitant]

REACTIONS (10)
  - CARDIAC DISCOMFORT [None]
  - CHEST DISCOMFORT [None]
  - DRUG INEFFECTIVE [None]
  - DRUG INTERACTION [None]
  - EPISTAXIS [None]
  - HAEMORRHAGE SUBCUTANEOUS [None]
  - HYPOAESTHESIA [None]
  - INSOMNIA [None]
  - PAIN IN EXTREMITY [None]
  - PLATELET COUNT DECREASED [None]
